FAERS Safety Report 7968299-2 (Version None)
Quarter: 2011Q4

REPORT INFORMATION
  Report Type: 
  Country: None (occurrence: None)
  Receive Date: 20111209
  Receipt Date: 20111128
  Transmission Date: 20120403
  Serious: Yes (Hospitalization)
  Sender: FDA-Public Use
  Company Number: KR-BRISTOL-MYERS SQUIBB COMPANY-16254971

PATIENT
  Age: 66 Year
  Sex: Female

DRUGS (1)
  1. TRIAMCINOLONE ACETONIDE [Suspect]
     Dosage: DOSAGE FORM: TRANSFORAMINAL SUSPENSION 10INFUSIONS

REACTIONS (1)
  - DYSTROPHIC CALCIFICATION [None]
